FAERS Safety Report 14858099 (Version 2)
Quarter: 2018Q2

REPORT INFORMATION
  Report Type: Report from Study
  Country: IT (occurrence: IT)
  Receive Date: 20180508
  Receipt Date: 20180614
  Transmission Date: 20180711
  Serious: Yes (Hospitalization)
  Sender: FDA-Public Use
  Company Number: IT-CONCORDIA PHARMACEUTICALS INC.-E2B_00011587

PATIENT
  Age: 85 Year
  Sex: Female
  Weight: 82 kg

DRUGS (1)
  1. DIGOXIN. [Suspect]
     Active Substance: DIGOXIN
     Route: 030
     Dates: start: 20180402, end: 20180402

REACTIONS (4)
  - Electrocardiogram ST segment depression [Recovered/Resolved]
  - Medication error [Recovered/Resolved]
  - Vomiting [Recovered/Resolved]
  - Hyperkalaemia [Recovered/Resolved]

NARRATIVE: CASE EVENT DATE: 20180402
